FAERS Safety Report 14142509 (Version 2)
Quarter: 2017Q4

REPORT INFORMATION
  Report Type: Report from Study
  Country: AU (occurrence: AU)
  Receive Date: 20171030
  Receipt Date: 20171204
  Transmission Date: 20180321
  Serious: Yes (Death, Other)
  Sender: FDA-Public Use
  Company Number: AU-REGENERON PHARMACEUTICALS, INC.-2017-25163

PATIENT

DRUGS (29)
  1. EYLEA [Suspect]
     Active Substance: AFLIBERCEPT
     Indication: AGE-RELATED MACULAR DEGENERATION
     Dosage: UNK, ONCE ( #1, RIGHT EYE)
     Route: 031
     Dates: start: 20141126, end: 20141126
  2. EYLEA [Suspect]
     Active Substance: AFLIBERCEPT
     Dosage: UNK, ONCE ( #1, LEFT EYE)
     Route: 031
     Dates: start: 20151111, end: 20151111
  3. EYLEA [Suspect]
     Active Substance: AFLIBERCEPT
     Dosage: UNK, ONCE ( #12, RIGHT EYE)
     Route: 031
     Dates: start: 20160810, end: 20160810
  4. NOVORAPID [Concomitant]
     Active Substance: INSULIN ASPART
     Indication: DIABETES MELLITUS
     Dosage: 8-10 UNITS MANE, 3-5 LUNCHTIME, 17 DINNERTIME
  5. EYLEA [Suspect]
     Active Substance: AFLIBERCEPT
     Dosage: UNK, ONCE ( #3, RIGHT EYE)
     Route: 031
     Dates: start: 20150128, end: 20150128
  6. EYLEA [Suspect]
     Active Substance: AFLIBERCEPT
     Dosage: UNK, ONCE ( #10, RIGHT EYE)
     Route: 031
     Dates: start: 20160427, end: 20160427
  7. EYLEA [Suspect]
     Active Substance: AFLIBERCEPT
     Dosage: UNK, ONCE ( #13, RIGHT EYE)
     Route: 031
     Dates: start: 20160829, end: 20160829
  8. DUOLIN                             /01033501/ [Concomitant]
     Active Substance: ALBUTEROL\IPRATROPIUM BROMIDE
     Indication: PRODUCT USED FOR UNKNOWN INDICATION
     Dosage: INHALER
  9. ONDANSETRON [Concomitant]
     Active Substance: ONDANSETRON
     Indication: PRODUCT USED FOR UNKNOWN INDICATION
     Dosage: UNK UNK, PRN
  10. OVESTIN [Concomitant]
     Active Substance: ESTRIOL
     Indication: PRODUCT USED FOR UNKNOWN INDICATION
  11. EYLEA [Suspect]
     Active Substance: AFLIBERCEPT
     Dosage: UNK, ONCE ( #2, RIGHT EYE)
     Route: 031
     Dates: start: 20141228, end: 20141228
  12. EYLEA [Suspect]
     Active Substance: AFLIBERCEPT
     Dosage: UNK, ONCE ( #5, RIGHT EYE)
     Route: 031
     Dates: start: 20150527, end: 20150527
  13. EYLEA [Suspect]
     Active Substance: AFLIBERCEPT
     Dosage: UNK, ONCE ( #11, RIGHT EYE)
     Route: 031
     Dates: start: 20160617, end: 20160617
  14. EYLEA [Suspect]
     Active Substance: AFLIBERCEPT
     Dosage: UNK, ONCE ( #15, RIGHT EYE)
     Route: 031
     Dates: start: 20170125, end: 20170125
  15. EYLEA [Suspect]
     Active Substance: AFLIBERCEPT
     Dosage: UNK, ONCE ( #16, RIGHT EYE)
     Route: 031
     Dates: start: 20170411, end: 20170411
  16. LANTUS [Concomitant]
     Active Substance: INSULIN GLARGINE
     Indication: DIABETES MELLITUS
     Dosage: 20 IU, HS
  17. EYLEA [Suspect]
     Active Substance: AFLIBERCEPT
     Dosage: UNK, ONCE ( #6, RIGHT EYE)
     Route: 031
     Dates: start: 20150826, end: 20150826
  18. EYLEA [Suspect]
     Active Substance: AFLIBERCEPT
     Dosage: UNK, ONCE ( #3, LEFT EYE) (TREATMENT CEASED)
     Route: 031
     Dates: start: 20160113, end: 20160113
  19. EYLEA [Suspect]
     Active Substance: AFLIBERCEPT
     Dosage: UNK, ONCE ( #8, RIGHT EYE)
     Route: 031
     Dates: start: 20151222, end: 20151222
  20. EYLEA [Suspect]
     Active Substance: AFLIBERCEPT
     Dosage: UNK, ONCE ( #9, RIGHT EYE)
     Route: 031
     Dates: start: 20160226, end: 20160226
  21. EYLEA [Suspect]
     Active Substance: AFLIBERCEPT
     Dosage: UNK, ONCE ( #14, RIGHT EYE)
     Route: 031
     Dates: start: 20161130, end: 20161130
  22. AZOPT [Concomitant]
     Active Substance: BRINZOLAMIDE
     Indication: OPEN ANGLE GLAUCOMA
     Dosage: UNK UNK, QD (BOTH EYES)
  23. TEMAZEPAM. [Concomitant]
     Active Substance: TEMAZEPAM
     Indication: PRODUCT USED FOR UNKNOWN INDICATION
     Dosage: 1-2 TABLETS AT NIGHT
  24. TRAMADOL. [Concomitant]
     Active Substance: TRAMADOL
     Indication: PRODUCT USED FOR UNKNOWN INDICATION
     Dosage: UNK UNK, PRN
  25. EYLEA [Suspect]
     Active Substance: AFLIBERCEPT
     Dosage: ( #7, RIGHT EYE)
     Route: 031
     Dates: start: 20151028, end: 20151028
  26. TIMOLOL. [Concomitant]
     Active Substance: TIMOLOL
     Indication: OPEN ANGLE GLAUCOMA
     Dosage: UNK UNK, QD (BOTH EYES)
  27. EYLEA [Suspect]
     Active Substance: AFLIBERCEPT
     Dosage: UNK, ONCE ( #4, RIGHT EYE)
     Route: 031
     Dates: start: 20150325, end: 20150325
  28. EYLEA [Suspect]
     Active Substance: AFLIBERCEPT
     Dosage: UNK, ONCE ( #2, LEFT EYE)
     Route: 031
     Dates: start: 20151229, end: 20151229
  29. EYLEA [Suspect]
     Active Substance: AFLIBERCEPT
     Dosage: UNK, ONCE ( #17, RIGHT EYE) (LAST INJECTION - THE PAT. BECAME TOO UNWELL TO TRAVEL)
     Route: 031
     Dates: start: 20170614, end: 20170614

REACTIONS (1)
  - Pancreatic carcinoma metastatic [Fatal]
